FAERS Safety Report 23601890 (Version 1)
Quarter: 2024Q1

REPORT INFORMATION
  Report Type: Spontaneous
  Country: US (occurrence: None)
  Receive Date: 20240306
  Receipt Date: 20240306
  Transmission Date: 20240410
  Serious: Yes (Hospitalization)
  Sender: FDA-Public Use
  Company Number: None

PATIENT
  Age: 45 Year
  Sex: Male
  Weight: 91 kg

DRUGS (2)
  1. IFOSFAMIDE [Suspect]
     Active Substance: IFOSFAMIDE
     Dates: end: 20210712
  2. TAXOL [Suspect]
     Active Substance: PACLITAXEL
     Dates: end: 20210709

REACTIONS (1)
  - Bone pain [None]

NARRATIVE: CASE EVENT DATE: 20210713
